FAERS Safety Report 16791474 (Version 1)
Quarter: 2019Q3

REPORT INFORMATION
  Report Type: Spontaneous
  Country: FR (occurrence: FR)
  Receive Date: 20190910
  Receipt Date: 20190910
  Transmission Date: 20191005
  Serious: Yes (Other)
  Sender: FDA-Public Use
  Company Number: FR-MYLANLABS-2019M1083981

PATIENT
  Age: 8 Year
  Sex: Male
  Weight: 30.8 kg

DRUGS (8)
  1. HYDROCORTISONE. [Suspect]
     Active Substance: HYDROCORTISONE
     Indication: T-CELL TYPE ACUTE LEUKAEMIA
     Dosage: 15 MILLIGRAM, TOTAL
     Route: 037
     Dates: start: 20181029, end: 20181029
  2. CYTARABINE. [Suspect]
     Active Substance: CYTARABINE
     Indication: T-CELL TYPE ACUTE LEUKAEMIA
     Dosage: 30 MILLIGRAM, TOTAL
     Route: 037
     Dates: start: 20181029, end: 20181029
  3. ASPARAGINASE [Suspect]
     Active Substance: ASPARAGINASE
     Indication: T-CELL TYPE ACUTE LEUKAEMIA
     Dosage: UNK UNK, TOTAL
     Route: 041
     Dates: start: 20181102, end: 20181102
  4. METHOTREXATE. [Suspect]
     Active Substance: METHOTREXATE
     Indication: T-CELL TYPE ACUTE LEUKAEMIA
     Dosage: 12 MILLIGRAM, TOTAL
     Route: 037
     Dates: start: 20181029, end: 20181029
  5. CYCLOPHOSPHAMIDE. [Suspect]
     Active Substance: CYCLOPHOSPHAMIDE
     Indication: T-CELL TYPE ACUTE LEUKAEMIA
     Dosage: 1000 MILLIGRAM/SQ. METER, TOTAL
     Route: 041
     Dates: start: 20181030, end: 20181030
  6. PREDNISOLONE. [Suspect]
     Active Substance: PREDNISOLONE
     Indication: T-CELL TYPE ACUTE LEUKAEMIA
     Dosage: 60 MILLIGRAM/SQ. METER, QD
     Route: 048
     Dates: start: 20181029
  7. VINCRISTINE SULFATE. [Suspect]
     Active Substance: VINCRISTINE SULFATE
     Indication: T-CELL TYPE ACUTE LEUKAEMIA
     Dosage: 1.5 MILLIGRAM/SQ. METER, TOTAL
     Route: 041
     Dates: start: 20181105, end: 20181105
  8. DAUNORUBICINE [Suspect]
     Active Substance: DAUNORUBICIN
     Indication: T-CELL TYPE ACUTE LEUKAEMIA
     Dosage: 40 MILLIGRAM/SQ. METER, TOTAL
     Route: 041
     Dates: start: 20181105, end: 20181105

REACTIONS (1)
  - Atrioventricular block second degree [Recovered/Resolved]

NARRATIVE: CASE EVENT DATE: 20181105
